FAERS Safety Report 15994415 (Version 1)
Quarter: 2019Q1

REPORT INFORMATION
  Report Type: Spontaneous
  Country: SA (occurrence: SA)
  Receive Date: 20190222
  Receipt Date: 20190222
  Transmission Date: 20190418
  Serious: Yes (Hospitalization, Other)
  Sender: FDA-Public Use
  Company Number: SA-UNICHEM PHARMACEUTICALS (USA) INC-UCM201902-000080

PATIENT
  Age: 29 Year
  Sex: Male

DRUGS (2)
  1. QUETIAPINE. [Suspect]
     Active Substance: QUETIAPINE
     Indication: SHARED PSYCHOTIC DISORDER
  2. RISPERIDONE. [Suspect]
     Active Substance: RISPERIDONE
     Indication: SHARED PSYCHOTIC DISORDER

REACTIONS (2)
  - Neuroleptic malignant syndrome [Recovering/Resolving]
  - Pulmonary embolism [Unknown]
